FAERS Safety Report 7230001-X (Version None)
Quarter: 2011Q1

REPORT INFORMATION
  Report Type: 
  Country: None (occurrence: None)
  Receive Date: 20110117
  Receipt Date: 20110111
  Transmission Date: 20110831
  Serious: Yes (Death, Other)
  Sender: FDA-Public Use
  Company Number: PHHY2011KR02692

PATIENT
  Age: 56 Year
  Sex: Male

DRUGS (2)
  1. CLEXANE [Suspect]
     Dosage: 50 MG, BID
     Route: 058
  2. WARFARIN [Suspect]
     Dosage: 5 MG, QD

REACTIONS (24)
  - DEEP VEIN THROMBOSIS [None]
  - OEDEMA PERIPHERAL [None]
  - SKIN DISCOLOURATION [None]
  - PENILE NECROSIS [None]
  - THROMBOCYTOPENIA [None]
  - ERECTION INCREASED [None]
  - SKIN WARM [None]
  - WHITE BLOOD CELL COUNT INCREASED [None]
  - TENDERNESS [None]
  - PENIS DISORDER [None]
  - PROTEIN C DEFICIENCY [None]
  - PROTEIN S DEFICIENCY [None]
  - HAEMATOCRIT INCREASED [None]
  - LUNG ADENOCARCINOMA METASTATIC [None]
  - ANXIETY [None]
  - PRIAPISM [None]
  - HAEMOGLOBIN DECREASED [None]
  - URINARY RETENTION [None]
  - ACIDOSIS [None]
  - CACHEXIA [None]
  - MALAISE [None]
  - PAINFUL ERECTION [None]
  - PROTHROMBIN TIME PROLONGED [None]
  - INTERNATIONAL NORMALISED RATIO INCREASED [None]
